FAERS Safety Report 9166346 (Version 1)
Quarter: 2013Q1

REPORT INFORMATION
  Report Type: Spontaneous
  Country: US (occurrence: US)
  Receive Date: 20130315
  Receipt Date: 20130315
  Transmission Date: 20140127
  Serious: No
  Sender: FDA-Public Use
  Company Number: US-009507513-1303USA007530

PATIENT
  Age: 32 Year
  Sex: Female

DRUGS (1)
  1. CLARITIN-D 24 HOUR [Suspect]
     Indication: HYPERSENSITIVITY
     Dosage: 10 MG, UNKNOWN
     Route: 048

REACTIONS (4)
  - Head discomfort [Unknown]
  - Dry mouth [Not Recovered/Not Resolved]
  - Initial insomnia [Not Recovered/Not Resolved]
  - Thirst [Unknown]
